FAERS Safety Report 8858844 (Version 1)
Quarter: 2012Q4

REPORT INFORMATION
  Report Type: 
  Country: US (occurrence: US)
  Receive Date: 20121024
  Receipt Date: 20121024
  Transmission Date: 20130627
  Serious: Yes (Hospitalization)
  Sender: FDA-Public Use
  Company Number: US-BAYER-2012-110460

PATIENT
  Age: 35 Year
  Sex: Female

DRUGS (4)
  1. YAZ [Suspect]
  2. HYDROCODONE W/APAP [Concomitant]
     Dosage: 5/500mg
     Dates: start: 20100512
  3. IBUPROFEN [Concomitant]
     Dosage: 600 mg, UNK
     Dates: start: 20100512
  4. NORCO [Concomitant]
     Indication: PAIN

REACTIONS (2)
  - Pulmonary embolism [Recovered/Resolved]
  - Pulmonary infarction [Recovered/Resolved]
